FAERS Safety Report 8286610-2 (Version None)
Quarter: 2012Q1

REPORT INFORMATION
  Report Type: 
  Country: None (occurrence: None)
  Receive Date: 20120323
  Receipt Date: 20120309
  Transmission Date: 20120608
  Serious: Yes (Death, Hospitalization, Other)
  Sender: FDA-Public Use
  Company Number: 2012PROUSA01095

PATIENT
  Age: 78 Year
  Sex: Male
  Weight: 80.4 kg

DRUGS (7)
  1. COLACE (DOCUSATE SODIUM) [Concomitant]
  2. STARLIX [Concomitant]
  3. OXYCODONE HCL [Concomitant]
  4. PROVENGE [Suspect]
     Indication: PROSTATE CANCER METASTATIC
     Dosage: 250 ML, SINGLE, INTRAVENOUS
     Route: 042
     Dates: start: 20111208, end: 20111208
  5. JANUVIA [Concomitant]
  6. ASPIRIN [Concomitant]
  7. SENNA-MINT WAF [Concomitant]

REACTIONS (2)
  - HAEMORRHAGIC STROKE [None]
  - CEREBRAL SMALL VESSEL ISCHAEMIC DISEASE [None]
